FAERS Safety Report 7206209-6 (Version None)
Quarter: 2011Q1

REPORT INFORMATION
  Report Type: 
  Country: None (occurrence: None)
  Receive Date: 20110103
  Receipt Date: 20101221
  Transmission Date: 20110831
  Serious: Yes (Other)
  Sender: FDA-Public Use
  Company Number: US-ELI_LILLY_AND_COMPANY-US201005000163

PATIENT
  Sex: Male

DRUGS (7)
  1. NIFEDIPINE [Concomitant]
  2. SUCRALFAT [Concomitant]
  3. OMEPRAZOLE [Concomitant]
  4. CALTRATE [Concomitant]
  5. FERROUS SULFATE [Concomitant]
  6. FORTEO [Suspect]
     Indication: OSTEOPOROSIS
     Dosage: 20 UG, DAILY (1/D)
     Dates: start: 20090601
  7. MULTIVITAMIN [Concomitant]

REACTIONS (2)
  - TONGUE NEOPLASM [None]
  - MUSCULOSKELETAL DISCOMFORT [None]
